FAERS Safety Report 5883208-8 (Version None)
Quarter: 2008Q3

REPORT INFORMATION
  Report Type: 
  Country: None (occurrence: None)
  Receive Date: 20080915
  Receipt Date: 20080912
  Transmission Date: 20090109
  Serious: Yes (Hospitalization)
  Sender: FDA-Public Use
  Company Number: FR-SP-2008-02282

PATIENT
  Age: 77 Year
  Sex: Male

DRUGS (3)
  1. IMMUCYST [Suspect]
     Indication: BLADDER CANCER
     Route: 043
     Dates: end: 20080605
  2. IRBESARTAN + HYDROCHLOROTHIAZIDE [Concomitant]
  3. CERIS (TROSPIUM CHLORIDE) [Concomitant]

REACTIONS (1)
  - PYREXIA [None]
